FAERS Safety Report 6258142-4 (Version None)
Quarter: 2009Q3

REPORT INFORMATION
  Report Type: 
  Country: None (occurrence: None)
  Receive Date: 20090702
  Receipt Date: 20090617
  Transmission Date: 20100115
  Serious: Yes (Other)
  Sender: FDA-Public Use
  Company Number: 09-062

PATIENT
  Age: 80 Year
  Sex: Female

DRUGS (1)
  1. CEFOTAXIME [Suspect]
     Dosage: 1 G X 3/DAY

REACTIONS (3)
  - CONVULSION [None]
  - ENCEPHALOPATHY [None]
  - RESTLESSNESS [None]
